FAERS Safety Report 11161892 (Version 1)
Quarter: 2015Q2

REPORT INFORMATION
  Report Type: Spontaneous
  Country: US (occurrence: None)
  Receive Date: 20150603
  Receipt Date: 20150603
  Transmission Date: 20150821
  Serious: Yes (Life-Threatening, Hospitalization)
  Sender: FDA-Public Use
  Company Number: None

PATIENT
  Age: 68 Year
  Sex: Male
  Weight: 92.2 kg

DRUGS (2)
  1. ENOXAPARIN [Suspect]
     Active Substance: ENOXAPARIN
     Indication: ATRIAL FIBRILLATION
     Dosage: SQ
     Dates: start: 20150508, end: 20150512
  2. WARFARIN [Suspect]
     Active Substance: WARFARIN
     Dosage: PM
     Route: 048
     Dates: start: 20100505, end: 20150505

REACTIONS (9)
  - Urinary tract infection [None]
  - Renal disorder [None]
  - International normalised ratio decreased [None]
  - Injection site haematoma [None]
  - Anaemia [None]
  - Haematuria [None]
  - Haemorrhage [None]
  - Large intestine polyp [None]
  - Blood creatinine increased [None]

NARRATIVE: CASE EVENT DATE: 20150513
